FAERS Safety Report 9121566 (Version 5)
Quarter: 2015Q3

REPORT INFORMATION
  Report Type: Spontaneous
  Country: US (occurrence: US)
  Receive Date: 20130227
  Receipt Date: 20150817
  Transmission Date: 20151125
  Serious: Yes (Death, Hospitalization)
  Sender: FDA-Public Use
  Company Number: US-BIOGENIDEC-2013BI017229

PATIENT
  Age: 70 Year
  Sex: Female

DRUGS (21)
  1. LIPITOR [Concomitant]
     Active Substance: ATORVASTATIN CALCIUM
  2. CARTIA XT [Concomitant]
     Active Substance: DILTIAZEM HYDROCHLORIDE
  3. METHADONE [Concomitant]
     Active Substance: METHADONE HYDROCHLORIDE
     Route: 048
  4. K LOR [Concomitant]
  5. SAPHRIS [Concomitant]
     Active Substance: ASENAPINE MALEATE
  6. TOPAMAX [Concomitant]
     Active Substance: TOPIRAMATE
     Route: 048
  7. CENTRUM [Concomitant]
     Active Substance: VITAMINS
  8. TYSABRI [Suspect]
     Active Substance: NATALIZUMAB
     Indication: MULTIPLE SCLEROSIS
     Route: 042
     Dates: start: 20121116, end: 20130111
  9. EFFEXOR [Concomitant]
     Active Substance: VENLAFAXINE HYDROCHLORIDE
  10. STEROID [Concomitant]
     Active Substance: UNSPECIFIED INGREDIENT
     Route: 061
  11. VITAMIN D [Concomitant]
     Active Substance: CHOLECALCIFEROL
     Route: 048
  12. AMPYRA [Concomitant]
     Active Substance: DALFAMPRIDINE
     Indication: MULTIPLE SCLEROSIS
  13. MIRALAX [Concomitant]
     Active Substance: POLYETHYLENE GLYCOL 3350
  14. TYSABRI [Suspect]
     Active Substance: NATALIZUMAB
     Indication: MULTIPLE SCLEROSIS
     Route: 042
     Dates: start: 20070405, end: 20120905
  15. ADDERALL [Concomitant]
     Active Substance: AMPHETAMINE ASPARTATE\AMPHETAMINE SULFATE\DEXTROAMPHETAMINE SACCHARATE\DEXTROAMPHETAMINE SULFATE
     Indication: FATIGUE
     Route: 048
  16. CYMBALTA [Concomitant]
     Active Substance: DULOXETINE HYDROCHLORIDE
     Route: 048
  17. TERAZOSIN [Concomitant]
     Active Substance: TERAZOSIN\TERAZOSIN HYDROCHLORIDE
  18. APLUZIN [Concomitant]
     Route: 048
  19. BUMETANIDE. [Concomitant]
     Active Substance: BUMETANIDE
  20. CALCIUM [Concomitant]
     Active Substance: CALCIUM
  21. PEPCID [Concomitant]
     Active Substance: FAMOTIDINE

REACTIONS (3)
  - Progressive multifocal leukoencephalopathy [Fatal]
  - Macular degeneration [Unknown]
  - Pemphigoid [Unknown]

NARRATIVE: CASE EVENT DATE: 201302
